FAERS Safety Report 5223922-0 (Version None)
Quarter: 2007Q1

REPORT INFORMATION
  Report Type: 
  Country: None (occurrence: None)
  Receive Date: 20070130
  Receipt Date: 20070119
  Transmission Date: 20070707
  Serious: Yes (Hospitalization)
  Sender: FDA-Public Use
  Company Number: FR-ROCHE-446075

PATIENT
  Age: 40 Year
  Sex: Male
  Weight: 68 kg

DRUGS (9)
  1. FUZEON [Suspect]
     Route: 058
     Dates: start: 20060110
  2. FUZEON [Suspect]
     Route: 058
     Dates: start: 20050315, end: 20050817
  3. FUZEON [Suspect]
     Route: 058
     Dates: start: 20050902, end: 20051027
  4. KIVEXA [Suspect]
     Indication: DRUG USE FOR UNKNOWN INDICATION
     Route: 048
     Dates: start: 20060110
  5. VIDEX [Suspect]
     Indication: DRUG USE FOR UNKNOWN INDICATION
     Route: 048
     Dates: start: 20060110
  6. VIDEX [Suspect]
     Route: 048
     Dates: start: 20050315, end: 20050817
  7. VIDEX [Suspect]
     Route: 048
     Dates: start: 20050904
  8. PREZISTA [Suspect]
     Indication: DRUG USE FOR UNKNOWN INDICATION
     Route: 048
     Dates: start: 20060110
  9. NORVIR [Concomitant]
     Dosage: ON 17 AUG 2005, RITONAVIR WAS STOPPED AND RESTARTED ON 04 SEPT 2005. AS OF 10 JAN 2006, RITONAVIR W+
     Dates: start: 20050315

REACTIONS (5)
  - BLOOD CREATINE PHOSPHOKINASE INCREASED [None]
  - CYTOLYTIC HEPATITIS [None]
  - FOLLICULITIS [None]
  - MOLLUSCUM CONTAGIOSUM [None]
  - RHABDOMYOLYSIS [None]
